FAERS Safety Report 5413566-X (Version None)
Quarter: 2007Q3

REPORT INFORMATION
  Report Type: 
  Country: None (occurrence: None)
  Receive Date: 20070814
  Receipt Date: 20070808
  Transmission Date: 20080115
  Serious: Yes (Death, Hospitalization, Disabling)
  Sender: FDA-Public Use
  Company Number: CA-ASTRAZENECA-2007UW04271

PATIENT
  Age: 56 Year
  Sex: Female

DRUGS (5)
  1. IRESSA [Suspect]
     Indication: BRONCHIOLOALVEOLAR CARCINOMA
     Route: 048
     Dates: start: 20050506, end: 20050929
  2. IRESSA [Suspect]
     Route: 048
     Dates: start: 20060308, end: 20070207
  3. RABEPRAZOLE SODIUM [Concomitant]
  4. MSIR [Concomitant]
     Dosage: 10 MG Q4H PRN
  5. TYLENOL (CAPLET) [Concomitant]

REACTIONS (7)
  - ASCITES [None]
  - HEPATIC FAILURE [None]
  - NON-SMALL CELL LUNG CANCER METASTATIC [None]
  - OEDEMA [None]
  - PLEURAL EFFUSION [None]
  - PNEUMOTHORAX [None]
  - RENAL FAILURE ACUTE [None]
